FAERS Safety Report 8043260-0 (Version None)
Quarter: 2012Q1

REPORT INFORMATION
  Report Type: 
  Country: None (occurrence: None)
  Receive Date: 20120112
  Receipt Date: 20120109
  Transmission Date: 20120608
  Serious: Yes (Other)
  Sender: FDA-Public Use
  Company Number: US-AMGEN INC.-KDC410063

PATIENT
  Age: 46 Year
  Sex: Female
  Weight: 93.1 kg

DRUGS (17)
  1. ROSUVASTATIN CALCIUM [Concomitant]
     Dosage: 5 MG, QOD
     Dates: start: 20100310
  2. OLOPATADINE [Concomitant]
     Dosage: UNK UNK, UNK
  3. LOVASTATIN [Concomitant]
     Dosage: 20 MG, QD
     Route: 048
     Dates: start: 20090301, end: 20090601
  4. HYDROCHLOROTHIAZIDE [Concomitant]
     Dosage: 12.5 MG, QD
  5. ETANERCEPT [Suspect]
     Indication: PSORIASIS
     Dosage: 50 MG, UNK
     Dates: start: 20070129, end: 20100301
  6. LEVOTHYROXINE SODIUM [Concomitant]
     Dosage: 125 MUG, QD
     Route: 048
  7. BENZONATATE [Concomitant]
     Dosage: 100 MG, TID
     Route: 048
     Dates: start: 20100204
  8. DERMATOP [Concomitant]
     Dosage: UNK UNK, PRN
     Route: 061
  9. OMEPRAZOLE [Concomitant]
     Dosage: 20 MG, BID
     Route: 048
  10. CALCIUM [Concomitant]
     Dosage: UNK UNK, UNK
  11. MAGNESIUM [Concomitant]
     Dosage: UNK UNK, UNK
  12. ELIDEL [Concomitant]
     Dosage: UNK UNK, PRN
     Route: 061
  13. FLAX SEED OIL [Concomitant]
     Dosage: 1000 MG, UNK
  14. CLOBEX [Concomitant]
     Dosage: UNK UNK, PRN
     Route: 061
  15. PANTOPRAZOLE SODIUM [Concomitant]
     Dosage: 40 MG, BID
     Route: 048
  16. ZINC [Concomitant]
     Dosage: 100 MG, UNK
  17. MOMETASONE FUROATE [Concomitant]
     Dosage: 220 MUG, QD
     Route: 048
     Dates: start: 20100204, end: 20100301

REACTIONS (1)
  - HEPATITIS [None]
